FAERS Safety Report 26086501 (Version 1)
Quarter: 2025Q4

REPORT INFORMATION
  Report Type: Spontaneous
  Country: US (occurrence: US)
  Receive Date: 20251125
  Receipt Date: 20251125
  Transmission Date: 20260117
  Serious: Yes (Other)
  Sender: ALCON
  Company Number: US-ALCON LABORATORIES-ALC2025US006669

PATIENT
  Age: 44 Year
  Sex: Male

DRUGS (2)
  1. FLUORESCITE [Suspect]
     Active Substance: FLUORESCEIN SODIUM
     Indication: Product used for unknown indication
     Dosage: UNK
     Route: 065
  2. FLUORESCITE [Suspect]
     Active Substance: FLUORESCEIN SODIUM
     Dosage: UNK
     Route: 065
     Dates: start: 20251112, end: 20251112

REACTIONS (8)
  - Angioedema [Unknown]
  - Nausea [Unknown]
  - Vomiting [Unknown]
  - Malaise [Unknown]
  - Fall [Unknown]
  - Head injury [Unknown]
  - Fatigue [Unknown]
  - Lethargy [Unknown]

NARRATIVE: CASE EVENT DATE: 20251112
